FAERS Safety Report 11005371 (Version 1)
Quarter: 2015Q2

REPORT INFORMATION
  Report Type: Spontaneous
  Country: CN (occurrence: CN)
  Receive Date: 20150409
  Receipt Date: 20150409
  Transmission Date: 20150821
  Serious: Yes (Other)
  Sender: FDA-Public Use
  Company Number: PHHY2015CN040918

PATIENT
  Age: 36 Year
  Sex: Male

DRUGS (2)
  1. TELBIVUDINE [Suspect]
     Active Substance: TELBIVUDINE
     Indication: VIRAL INFECTION
     Dosage: 600 MG, QD
     Route: 048
  2. DIISOPROPYLAMINE DICHLORACETATE [Concomitant]
     Indication: HEPATIC ENZYME ABNORMAL
     Route: 065

REACTIONS (1)
  - Neutropenia [Unknown]
